FAERS Safety Report 20755222 (Version 7)
Quarter: 2022Q4

REPORT INFORMATION
  Report Type: Spontaneous
  Country: US (occurrence: US)
  Receive Date: 20220427
  Receipt Date: 20221111
  Transmission Date: 20230113
  Serious: No
  Sender: FDA-Public Use
  Company Number: US-GLAXOSMITHKLINE-US2022AMR069404

PATIENT
  Sex: Female

DRUGS (2)
  1. ZEJULA [Suspect]
     Active Substance: NIRAPARIB
     Indication: Ovarian cancer
     Dosage: 1 DF, QD
     Route: 048
  2. ZEJULA [Suspect]
     Active Substance: NIRAPARIB
     Dosage: 200 MG, QD
     Route: 048

REACTIONS (11)
  - Fatigue [Not Recovered/Not Resolved]
  - Dizziness [Unknown]
  - Head discomfort [Unknown]
  - Abdominal discomfort [Recovering/Resolving]
  - Abdominal distension [Unknown]
  - Pain in extremity [Unknown]
  - Dry mouth [Unknown]
  - Weight increased [Unknown]
  - Swelling face [Unknown]
  - Off label use [Unknown]
  - Product dose omission issue [Unknown]
